FAERS Safety Report 16932449 (Version 1)
Quarter: 2019Q4

REPORT INFORMATION
  Report Type: Spontaneous
  Country: US (occurrence: US)
  Receive Date: 20191017
  Receipt Date: 20191017
  Transmission Date: 20200122
  Serious: No
  Sender: FDA-Public Use
  Company Number: US-C B FLEET CO INC-201904-US-000857

PATIENT
  Sex: Female

DRUGS (1)
  1. MONISTAT 1 COMBINATION PACK [Suspect]
     Active Substance: MICONAZOLE NITRATE
     Indication: FUNGAL INFECTION
     Dosage: INSERTED OVULE ONCE
     Route: 067

REACTIONS (6)
  - Vulvovaginal burning sensation [Unknown]
  - Abdominal pain [Unknown]
  - Vaginal haemorrhage [Unknown]
  - Vulvovaginal discomfort [Unknown]
  - Wrong technique in product usage process [None]
  - Nausea [Unknown]

NARRATIVE: CASE EVENT DATE: 20190314
